FAERS Safety Report 5110344-6 (Version None)
Quarter: 2006Q3

REPORT INFORMATION
  Report Type: 
  Country: None (occurrence: None)
  Receive Date: 20060915
  Receipt Date: 20060911
  Transmission Date: 20061208
  Serious: Yes (Hospitalization)
  Sender: FDA-Public Use
  Company Number: GBWYE890311SEP06

PATIENT
  Age: 19 Year
  Sex: Male

DRUGS (10)
  1. PIPERACILLIN AND TAZOBACTAM [Suspect]
     Indication: CYSTIC FIBROSIS
     Dosage: 4.5 MG 3X PER 1 DAY INTRAVENOUS
     Route: 042
     Dates: start: 20060620, end: 20060710
  2. AZITHROMYCIN [Concomitant]
  3. CEFTAZIDIME        (CEFTAZIDIME) [Concomitant]
  4. CREON [Concomitant]
  5. HEPSAL                (HEPARIN SODIUM) [Concomitant]
  6. SALINE MIXTURE    (AMMONIUM ACETATE/CAMPHOR WATER/SODIUM CITRATE/SODIU [Concomitant]
  7. SERETIDE               (SALMETEROL/FLUTICASONE) [Concomitant]
  8. TOBRAMYCIN [Concomitant]
  9. VITAMIN E [Concomitant]
  10. VITAMIN A AND D IN COMBINATION                (VITAMIN A AND D IN COMB [Concomitant]

REACTIONS (6)
  - CANDIDIASIS [None]
  - CENTRAL LINE INFECTION [None]
  - CHILLS [None]
  - FEELING COLD [None]
  - FEELING HOT [None]
  - PARAESTHESIA ORAL [None]
